FAERS Safety Report 6819919-7 (Version None)
Quarter: 2010Q3

REPORT INFORMATION
  Report Type: 
  Country: None (occurrence: None)
  Receive Date: 20100707
  Receipt Date: 20100702
  Transmission Date: 20110219
  Serious: Yes (Death, Life-Threatening, Hospitalization)
  Sender: FDA-Public Use
  Company Number: DE-ROCHE-610156

PATIENT
  Sex: Male
  Weight: 69 kg

DRUGS (6)
  1. METHOXY POLYETHYLENE GLYCOL-EPOETIN BETA [Suspect]
     Dosage: FORM: SYRINGE, LAST DOSE PRIOR TO SAE : 07 JANUARY 2009.
     Route: 058
     Dates: start: 20080905, end: 20090108
  2. DIOVAN [Concomitant]
     Dosage: DRUG REPORTED AS DIOVAN 160.TOTAL DAILY DOSE:320
     Dates: start: 20080616
  3. FUROSEMID [Concomitant]
     Dosage: DRUG REPORTED AS FUROSEMID 125.TOTAL DAILY DOSE:187.5
     Dates: start: 20081009
  4. FERROUS SULFATE TAB [Concomitant]
     Dosage: DRUG REPORTED AS FERROSANOL DUOD
     Dates: start: 20080616
  5. ASPIRIN [Concomitant]
     Dosage: TOTAL DAILY DOSE REPORTED AS 100
     Dates: start: 20081009
  6. TEBONIN [Concomitant]
     Dosage: DRUG: TEBONIN INTENS; TOTAL DAILY DOSE:240
     Dates: start: 20081204

REACTIONS (3)
  - ISCHAEMIC STROKE [None]
  - PLEURAL EFFUSION [None]
  - RENAL FAILURE [None]
